FAERS Safety Report 18432156 (Version 1)
Quarter: 2020Q4

REPORT INFORMATION
  Report Type: Spontaneous
  Country: US (occurrence: US)
  Receive Date: 20201027
  Receipt Date: 20201027
  Transmission Date: 20210114
  Serious: Yes (Death)
  Sender: FDA-Public Use
  Company Number: None

PATIENT
  Age: 91 Year
  Sex: Male
  Weight: 102 kg

DRUGS (1)
  1. REMDESIVIR. [Suspect]
     Active Substance: REMDESIVIR
     Indication: COVID-19
     Route: 042
     Dates: start: 20201018, end: 20201022

REACTIONS (9)
  - Blood creatinine increased [None]
  - Rectal haemorrhage [None]
  - Hypotension [None]
  - Tachycardia [None]
  - Alanine aminotransferase increased [None]
  - Apnoea [None]
  - Agitation [None]
  - Hypoxia [None]
  - Aspartate aminotransferase increased [None]

NARRATIVE: CASE EVENT DATE: 20201025
